FAERS Safety Report 9322341 (Version 1)
Quarter: 2013Q2

REPORT INFORMATION
  Report Type: Spontaneous
  Country: NL (occurrence: NL)
  Receive Date: 20130531
  Receipt Date: 20130531
  Transmission Date: 20140414
  Serious: Yes (Other)
  Sender: FDA-Public Use
  Company Number: NL-AMGEN-NLDSP2013038508

PATIENT
  Age: 45 Year
  Sex: Male

DRUGS (3)
  1. ENBREL [Suspect]
     Indication: PSORIATIC ARTHROPATHY
     Dosage: 50 MG, WEEKLY
     Dates: start: 2009, end: 2012
  2. ENBREL [Suspect]
     Dosage: 25 MG, WEEKLY
     Dates: start: 2012, end: 2013
  3. ENBREL [Suspect]
     Dosage: 50 MG, WEEKLY
     Dates: start: 2013

REACTIONS (1)
  - Psoriatic arthropathy [Unknown]
